FAERS Safety Report 24359882 (Version 2)
Quarter: 2024Q4

REPORT INFORMATION
  Report Type: Report from Study
  Country: US (occurrence: US)
  Receive Date: 20240924
  Receipt Date: 20241113
  Transmission Date: 20250114
  Serious: Yes (Other)
  Sender: AMNEAL
  Company Number: US-AMNEAL PHARMACEUTICALS-2024-AMRX-00266

PATIENT
  Sex: Female

DRUGS (5)
  1. CARBIDOPA\LEVODOPA [Suspect]
     Active Substance: CARBIDOPA\LEVODOPA
     Indication: Parkinson^s disease
     Dosage: 02 CAPSULE 03 TIMES A DAY AT 7AM, 12PM, 5PM AND 01 CAPSULE ONCE A DAY AT BEDTIME 10PM
     Route: 048
  2. CARBIDOPA\LEVODOPA [Suspect]
     Active Substance: CARBIDOPA\LEVODOPA
     Dosage: 36.25-145 MG, TAKE 2 CAPSULES BY MOUTH 4 TIMES A DAY
     Route: 048
     Dates: start: 20240517
  3. CARBIDOPA\LEVODOPA [Suspect]
     Active Substance: CARBIDOPA\LEVODOPA
     Dosage: 48.75MG-195MG, 1 CAPSULE, 4 /DAY
     Route: 048
     Dates: start: 20240820
  4. CARBIDOPA\LEVODOPA [Suspect]
     Active Substance: CARBIDOPA\LEVODOPA
     Dosage: 23.75-95MG, 2 CAPSULES, 4 /DAY
     Route: 048
     Dates: start: 20240918
  5. CARBIDOPA\LEVODOPA [Suspect]
     Active Substance: CARBIDOPA\LEVODOPA
     Dosage: 36.25-145 MG, TAKE 1 CAPSULES BY MOUTH 4 TIMES A DAY
     Route: 048

REACTIONS (5)
  - Oesophageal perforation [Unknown]
  - Fall [Unknown]
  - Foreign body in gastrointestinal tract [Unknown]
  - Retching [Unknown]
  - Product use issue [Unknown]
